FAERS Safety Report 5481253-8 (Version None)
Quarter: 2007Q4

REPORT INFORMATION
  Report Type: 
  Country: None (occurrence: None)
  Receive Date: 20071004
  Receipt Date: 20071004
  Transmission Date: 20080405
  Serious: Yes (Life-Threatening, Hospitalization)
  Sender: FDA-Public Use
  Company Number: None

PATIENT
  Sex: Female
  Weight: 71.2147 kg

DRUGS (4)
  1. CLOZARIL [Suspect]
     Indication: AGITATION
     Dosage: 100MG TWICE DAILY PO
     Route: 048
     Dates: start: 20060101, end: 20070823
  2. CLOZARIL [Suspect]
     Indication: SCHIZOPHRENIA
     Dosage: 100MG TWICE DAILY PO
     Route: 048
     Dates: start: 20060101, end: 20070823
  3. GEODON [Suspect]
     Indication: SCHIZOPHRENIA
     Dosage: 20MG PRN IM
     Route: 030
     Dates: start: 20070822, end: 20070823
  4. LITHIUM [Concomitant]

REACTIONS (5)
  - ABASIA [None]
  - DEPRESSED LEVEL OF CONSCIOUSNESS [None]
  - MOVEMENT DISORDER [None]
  - NEUROLEPTIC MALIGNANT SYNDROME [None]
  - SPEECH DISORDER [None]
